FAERS Safety Report 12784394 (Version 1)
Quarter: 2016Q3

REPORT INFORMATION
  Report Type: Not Available
  Country: FR (occurrence: FR)
  Receive Date: 20160927
  Receipt Date: 20160927
  Transmission Date: 20161109
  Serious: Yes (Hospitalization, Other)
  Sender: FDA-Public Use
  Company Number: FR-BEH-2014040933

PATIENT
  Age: 11 Year
  Sex: Male
  Weight: 49.2 kg

DRUGS (4)
  1. PRIVIGEN [Suspect]
     Active Substance: HUMAN IMMUNOGLOBULIN G
     Dosage: 50G/DAY OF ALL LOT NUMBERS
     Route: 042
     Dates: start: 20140210, end: 20140211
  2. PRIVIGEN [Suspect]
     Active Substance: HUMAN IMMUNOGLOBULIN G
     Indication: MYASTHENIA GRAVIS
     Dosage: 50G/DAY OF ALL LOT NUMBERS
     Route: 042
     Dates: start: 20140210, end: 20140211
  3. CORTICOSTEROID [Concomitant]
     Active Substance: CORTICOSTEROID NOS
     Dates: start: 20140213
  4. PRIVIGEN [Suspect]
     Active Substance: HUMAN IMMUNOGLOBULIN G
     Dosage: 50G/DAY OF ALL LOT NUMBERS
     Route: 042
     Dates: start: 20140210, end: 20140211

REACTIONS (9)
  - Haemoglobin decreased [Unknown]
  - Lipase increased [Unknown]
  - Amylase increased [Unknown]
  - Blood lactate dehydrogenase increased [Unknown]
  - Jaundice [Unknown]
  - Abdominal pain [Unknown]
  - Haemolysis [Not Recovered/Not Resolved]
  - Haptoglobin decreased [Unknown]
  - Blood bilirubin unconjugated increased [Unknown]

NARRATIVE: CASE EVENT DATE: 20140213
